FAERS Safety Report 11475655 (Version 6)
Quarter: 2018Q3

REPORT INFORMATION
  Report Type: Report from Study
  Country: CA (occurrence: CA)
  Receive Date: 20150909
  Receipt Date: 20180724
  Transmission Date: 20181010
  Serious: Yes (Other)
  Sender: FDA-Public Use
  Company Number: CA-ROCHE-1631793

PATIENT
  Age: 57 Year
  Sex: Female
  Weight: 72.6 kg

DRUGS (17)
  1. BENADRYL [Concomitant]
     Active Substance: DIPHENHYDRAMINE HYDROCHLORIDE
     Indication: PREMEDICATION
     Route: 048
     Dates: start: 20140815
  2. RITUXAN [Suspect]
     Active Substance: RITUXIMAB
     Indication: RHEUMATOID ARTHRITIS
     Route: 042
     Dates: start: 20140815
  3. AMLODIPINE [Concomitant]
     Active Substance: AMLODIPINE BESYLATE
     Route: 065
  4. TYLENOL [Concomitant]
     Active Substance: ACETAMINOPHEN
     Indication: PREMEDICATION
     Route: 048
     Dates: start: 20140815
  5. PRISTIQ EXTENDED?RELEASE [Concomitant]
     Active Substance: DESVENLAFAXINE SUCCINATE
  6. CELEBREX [Concomitant]
     Active Substance: CELECOXIB
  7. NORVASC [Concomitant]
     Active Substance: AMLODIPINE BESYLATE
  8. MODAFINIL. [Concomitant]
     Active Substance: MODAFINIL
     Dosage: 1 TAB IN AM
     Route: 065
  9. ATIVAN [Concomitant]
     Active Substance: LORAZEPAM
  10. EFFEXOR [Concomitant]
     Active Substance: VENLAFAXINE HYDROCHLORIDE
  11. SOLU?MEDROL [Concomitant]
     Active Substance: METHYLPREDNISOLONE SODIUM SUCCINATE
     Indication: PREMEDICATION
     Route: 042
     Dates: start: 20140815
  12. TECTA [Concomitant]
     Active Substance: PANTOPRAZOLE MAGNESIUM
  13. SAPHRIS [Concomitant]
     Active Substance: ASENAPINE MALEATE
  14. CONCERTA [Concomitant]
     Active Substance: METHYLPHENIDATE HYDROCHLORIDE
     Route: 065
  15. FOLATE [Concomitant]
     Active Substance: FOLATE SODIUM
  16. PREDNISONE. [Concomitant]
     Active Substance: PREDNISONE
  17. FETZIMA [Concomitant]
     Active Substance: LEVOMILNACIPRAN HYDROCHLORIDE

REACTIONS (6)
  - Blood cholesterol increased [Not Recovered/Not Resolved]
  - Body temperature fluctuation [Unknown]
  - Depression [Recovering/Resolving]
  - Decreased appetite [Recovering/Resolving]
  - Blood pressure fluctuation [Unknown]
  - Mental impairment [Unknown]

NARRATIVE: CASE EVENT DATE: 20150918
